FAERS Safety Report 11309610 (Version 2)
Quarter: 2015Q4

REPORT INFORMATION
  Report Type: Spontaneous
  Country: JP (occurrence: JP)
  Receive Date: 20150724
  Receipt Date: 20151014
  Transmission Date: 20160304
  Serious: Yes (Other)
  Sender: FDA-Public Use
  Company Number: GXJP2015JP000961

PATIENT
  Age: 66 Year
  Sex: Male
  Weight: 60.9 kg

DRUGS (21)
  1. FUROSEMIDE. [Concomitant]
     Active Substance: FUROSEMIDE
     Indication: PRODUCT USED FOR UNKNOWN INDICATION
     Dosage: 60 MG, QD
     Route: 048
     Dates: end: 20150607
  2. ARTIST [Concomitant]
     Active Substance: CARVEDILOL
     Indication: PRODUCT USED FOR UNKNOWN INDICATION
     Route: 048
  3. VILDAGLIPTIN [Concomitant]
     Active Substance: VILDAGLIPTIN
     Indication: PRODUCT USED FOR UNKNOWN INDICATION
     Route: 048
  4. PIMOBENDAN [Concomitant]
     Active Substance: PIMOBENDAN
     Indication: PRODUCT USED FOR UNKNOWN INDICATION
     Route: 048
  5. SOTACOR [Concomitant]
     Active Substance: SOTALOL HYDROCHLORIDE
     Indication: PRODUCT USED FOR UNKNOWN INDICATION
     Route: 048
  6. CUBICIN [Concomitant]
     Active Substance: DAPTOMYCIN
     Indication: INFECTION
     Route: 042
     Dates: end: 20150602
  7. INOVAN//DOPAMINE HYDROCHLORIDE [Concomitant]
     Active Substance: DOPAMINE HYDROCHLORIDE
     Indication: PRODUCT USED FOR UNKNOWN INDICATION
     Route: 065
  8. FUROSEMIDE. [Concomitant]
     Active Substance: FUROSEMIDE
     Dosage: 20 MG, QD
     Dates: start: 20150608
  9. SAMSCA [Concomitant]
     Active Substance: TOLVAPTAN
     Indication: PRODUCT USED FOR UNKNOWN INDICATION
     Route: 048
     Dates: end: 20150607
  10. CEFEPIME DIHYDROCHLORIDE FOR INTRAVENOUS INJECTION [Suspect]
     Active Substance: CEFEPIME HYDROCHLORIDE
     Indication: INFECTION
     Dosage: 1 G, BID
     Route: 041
     Dates: start: 20150601, end: 20150602
  11. URINORM [Concomitant]
     Active Substance: BENZBROMARONE
     Indication: PRODUCT USED FOR UNKNOWN INDICATION
     Route: 048
  12. LOSARTAN POTASSIUM. [Concomitant]
     Active Substance: LOSARTAN POTASSIUM
     Indication: PRODUCT USED FOR UNKNOWN INDICATION
     Route: 048
  13. SENNOSIDE A+B CALCIUM [Concomitant]
     Active Substance: SENNOSIDES A AND B
     Indication: PRODUCT USED FOR UNKNOWN INDICATION
     Route: 048
  14. CEFEPIME DIHYDROCHLORIDE FOR INTRAVENOUS INJECTION [Suspect]
     Active Substance: CEFEPIME HYDROCHLORIDE
     Dosage: 2 G, BID
     Route: 041
     Dates: start: 20150603, end: 20150610
  15. CEFEPIME DIHYDROCHLORIDE FOR INTRAVENOUS INJECTION [Suspect]
     Active Substance: CEFEPIME HYDROCHLORIDE
     Dosage: 2 G, QD
     Route: 041
  16. WARFARIN [Concomitant]
     Active Substance: WARFARIN
     Indication: PRODUCT USED FOR UNKNOWN INDICATION
     Route: 048
  17. BAYASPIRIN [Concomitant]
     Active Substance: ASPIRIN
     Indication: PRODUCT USED FOR UNKNOWN INDICATION
     Route: 048
  18. FRANDOL [Concomitant]
     Active Substance: ISOSORBIDE DINITRATE
     Indication: PRODUCT USED FOR UNKNOWN INDICATION
     Route: 003
  19. FLORID [Concomitant]
     Active Substance: MICONAZOLE
     Indication: PRODUCT USED FOR UNKNOWN INDICATION
     Route: 048
  20. CEFEPIME DIHYDROCHLORIDE FOR INTRAVENOUS INJECTION [Suspect]
     Active Substance: CEFEPIME HYDROCHLORIDE
     Dosage: 4 G, QD
     Route: 041
  21. ZOPICLONE [Concomitant]
     Active Substance: ZOPICLONE
     Indication: PRODUCT USED FOR UNKNOWN INDICATION
     Route: 048

REACTIONS (1)
  - Altered state of consciousness [Recovered/Resolved]

NARRATIVE: CASE EVENT DATE: 20150606
